FAERS Safety Report 24672960 (Version 1)
Quarter: 2024Q4

REPORT INFORMATION
  Report Type: Spontaneous
  Country: CA (occurrence: CA)
  Receive Date: 20241128
  Receipt Date: 20241128
  Transmission Date: 20250114
  Serious: Yes (Death, Other)
  Sender: STRIDES
  Company Number: CA-STRIDES ARCOLAB LIMITED-2024SP015361

PATIENT
  Age: 31 Year
  Sex: Male

DRUGS (6)
  1. ETOPOSIDE [Suspect]
     Active Substance: ETOPOSIDE
     Indication: Rhabdomyosarcoma
     Dosage: UNK, CYCLICAL (2 CYCLES)
     Route: 065
  2. DOXORUBICIN [Suspect]
     Active Substance: DOXORUBICIN
     Indication: Osteosarcoma
     Dosage: UNK, CYCLICAL (6 CYCLES)
     Route: 065
  3. CISPLATIN [Suspect]
     Active Substance: CISPLATIN
     Indication: Osteosarcoma
     Dosage: UNK, CYCLICAL (6 CYCLES)
     Route: 065
  4. IFOSFAMIDE [Suspect]
     Active Substance: IFOSFAMIDE
     Indication: Rhabdomyosarcoma
     Dosage: UNK, CYCLICAL (2 CYCLES)
     Route: 065
  5. REGORAFENIB [Suspect]
     Active Substance: REGORAFENIB
     Indication: Rhabdomyosarcoma
     Dosage: 160 MILLIGRAM, QD (FOR 21?DAYS WITH 7?DAYS OFF; TWO CYCLES)
     Route: 048
  6. ALECTINIB [Suspect]
     Active Substance: ALECTINIB
     Indication: Rhabdomyosarcoma
     Dosage: 600 MILLIGRAM, BID
     Route: 048

REACTIONS (5)
  - Malignant neoplasm progression [Fatal]
  - Metastases to salivary gland [Fatal]
  - Drug ineffective for unapproved indication [Fatal]
  - Metastases to lung [Unknown]
  - Osteosarcoma recurrent [Unknown]
